FAERS Safety Report 8026219-9 (Version None)
Quarter: 2012Q1

REPORT INFORMATION
  Report Type: 
  Country: None (occurrence: None)
  Receive Date: 20120105
  Receipt Date: 20110222
  Transmission Date: 20120608
  Serious: No
  Sender: FDA-Public Use
  Company Number: US-ABBOTT-11P-163-0707128-00

PATIENT
  Sex: Male

DRUGS (7)
  1. TRICOR [Suspect]
     Indication: PRODUCT USED FOR UNKNOWN INDICATION
     Dates: start: 20100101, end: 20100101
  2. LASIX [Suspect]
     Indication: PULMONARY OEDEMA
     Dates: start: 20110101
  3. SYNTHROID [Suspect]
     Dates: start: 20110101
  4. SYNTHROID [Suspect]
     Indication: THYROIDECTOMY
     Dates: start: 19890101, end: 20110101
  5. ASPIRIN [Suspect]
     Indication: PRODUCT USED FOR UNKNOWN INDICATION
     Dates: start: 20100101, end: 20100101
  6. LASIX [Suspect]
     Indication: CARDIAC FAILURE CONGESTIVE
  7. BISOPROPRIL [Suspect]
     Indication: HYPERTENSION

REACTIONS (2)
  - HYPOTENSION [None]
  - BLOOD PRESSURE INCREASED [None]
